FAERS Safety Report 8141062-8 (Version None)
Quarter: 2012Q1

REPORT INFORMATION
  Report Type: 
  Country: None (occurrence: None)
  Receive Date: 20120103
  Receipt Date: 20111013
  Transmission Date: 20120608
  Serious: No
  Sender: FDA-Public Use
  Company Number: AE-2011-002293

PATIENT
  Age: 58 Year
  Sex: Female
  Weight: 102.5129 kg

DRUGS (10)
  1. LASIX (LASIX) [Concomitant]
  2. POTASSIUM CHLORIDE [Concomitant]
  3. PEGINTERFERON (PEGINTERFERON ALFA-2A) [Concomitant]
  4. ATARAX [Concomitant]
  5. METAMUCIL (METAMUCIL ^PROCTOR + GAMBLE^) [Concomitant]
  6. CENTRUM (CENTRUM) [Concomitant]
  7. INCIVEK [Suspect]
     Dosage: 2571.4286 MG (750 MG,1 IN 7 HR),ORAL
     Route: 048
     Dates: start: 20110807
  8. RIBAVIRIN [Concomitant]
  9. DIOVAN [Concomitant]
  10. CALCIUM CARBONATE [Concomitant]

REACTIONS (3)
  - DYSPHAGIA [None]
  - LIP PAIN [None]
  - NON-CARDIAC CHEST PAIN [None]
